FAERS Safety Report 9297501 (Version 1)
Quarter: 2013Q2

REPORT INFORMATION
  Report Type: Spontaneous
  Country: US (occurrence: US)
  Receive Date: 20130520
  Receipt Date: 20130520
  Transmission Date: 20140414
  Serious: Yes (Other)
  Sender: FDA-Public Use
  Company Number: US-SANOFI-AVENTIS-2013SA049578

PATIENT
  Age: 60 Year
  Sex: Male
  Weight: 70 kg

DRUGS (8)
  1. LANTUS [Suspect]
     Indication: TYPE 2 DIABETES MELLITUS
     Dosage: 15-20 UNITS DAILY DOSE
  2. LIPITOR [Concomitant]
     Indication: BLOOD CHOLESTEROL
     Dates: start: 201211
  3. LISINOPRIL [Concomitant]
     Dates: start: 2009
  4. PLAVIX [Concomitant]
     Indication: CARDIAC DISORDER
     Dates: start: 201211
  5. NOVOLOG [Concomitant]
     Indication: DIABETES MELLITUS
     Dosage: 10 PER MEAL
     Dates: start: 2005
  6. ASPIRIN [Concomitant]
  7. VITAMIN D3 [Concomitant]
  8. LEVOTHYROXINE [Concomitant]
     Indication: THYROID DISORDER
     Dates: start: 2005

REACTIONS (2)
  - Myocardial infarction [Unknown]
  - Blood glucose increased [Recovered/Resolved]
